FAERS Safety Report 16418905 (Version 1)
Quarter: 2019Q2

REPORT INFORMATION
  Report Type: Spontaneous
  Country: DK (occurrence: DK)
  Receive Date: 20190612
  Receipt Date: 20190612
  Transmission Date: 20190711
  Serious: Yes (Other)
  Sender: FDA-Public Use
  Company Number: DK-TEVA-2019-DK-1060071

PATIENT
  Age: 61 Year
  Sex: Female

DRUGS (5)
  1. VALSARTAN OG HYDROCHLORTHIAZID [Suspect]
     Active Substance: HYDROCHLOROTHIAZIDE\VALSARTAN
     Indication: HYPERTENSION
     Dosage: STRENGTH:
     Route: 048
     Dates: start: 2005
  2. GLYCERYL TRINITRATE [Concomitant]
     Active Substance: NITROGLYCERIN
     Indication: ANGINA PECTORIS
     Dosage: STRENGTH: 0.4 MG/DOSE.
     Route: 048
     Dates: start: 201808
  3. BETNOVAT [Concomitant]
     Active Substance: BETAMETHASONE
     Indication: ECZEMA
     Dosage: STRENGTH: UNKNOWN. DOSE: UNKNOWN.
     Route: 003
     Dates: start: 20121217
  4. LOCOID [Concomitant]
     Active Substance: HYDROCORTISONE BUTYRATE
     Indication: ECZEMA
     Dosage: STRENGTH: 0.1%. DOSE: UNKNOWN.
     Route: 003
     Dates: start: 20090227
  5. FUCIDIN [Concomitant]
     Active Substance: FUSIDATE SODIUM
     Indication: SKIN DISORDER
     Dosage: 2 DOSAGE FORMS DAILY; STRENGTH: 10+20 MG/G.
     Route: 003
     Dates: start: 20170424, end: 20171213

REACTIONS (9)
  - Bowen^s disease [Unknown]
  - Malaise [Unknown]
  - Skin exfoliation [Unknown]
  - Nail disorder [Unknown]
  - Alopecia [Unknown]
  - Actinic keratosis [Unknown]
  - Skin cancer [Unknown]
  - Hyperhidrosis [Unknown]
  - Fungal infection [Unknown]

NARRATIVE: CASE EVENT DATE: 2008
